FAERS Safety Report 20325496 (Version 2)
Quarter: 2022Q1

REPORT INFORMATION
  Report Type: Other
  Country: US (occurrence: None)
  Receive Date: 20220112
  Receipt Date: 20220121
  Transmission Date: 20220423
  Serious: No
  Sender: FDA-Public Use
  Company Number: US-ROCHE-2997809

PATIENT
  Age: 65 Year
  Sex: Female

DRUGS (7)
  1. OCREVUS [Suspect]
     Active Substance: OCRELIZUMAB
     Indication: Relapsing multiple sclerosis
     Dosage: DATE OF TREATMENT: 19/DEC/2019.
     Route: 042
     Dates: start: 20180913
  2. OCREVUS [Suspect]
     Active Substance: OCRELIZUMAB
     Indication: Multiple sclerosis
  3. BACLOFEN [Concomitant]
     Active Substance: BACLOFEN
  4. AMPYRA [Concomitant]
     Active Substance: DALFAMPRIDINE
  5. TIZANIDINE [Concomitant]
     Active Substance: TIZANIDINE
  6. MODAFINIL [Concomitant]
     Active Substance: MODAFINIL
  7. COVID-19 VACCINE [Concomitant]

REACTIONS (1)
  - COVID-19 [Not Recovered/Not Resolved]

NARRATIVE: CASE EVENT DATE: 20220103
